FAERS Safety Report 21236485 (Version 2)
Quarter: 2022Q4

REPORT INFORMATION
  Report Type: Spontaneous
  Country: TR (occurrence: TR)
  Receive Date: 20220822
  Receipt Date: 20221021
  Transmission Date: 20230113
  Serious: Yes (Other)
  Sender: FDA-Public Use
  Company Number: TR-CELGENE-TUR-20190706330

PATIENT
  Age: 21 Year
  Sex: Female
  Weight: 52 kg

DRUGS (6)
  1. THALIDOMIDE [Suspect]
     Active Substance: THALIDOMIDE
     Indication: Behcet^s syndrome
     Dosage: 100 MILLIGRAM
     Route: 048
     Dates: start: 20190225, end: 20190630
  2. THALIDOMIDE [Suspect]
     Active Substance: THALIDOMIDE
     Dosage: 3 IN 1 DAY
     Route: 048
  3. MESALAMINE [Concomitant]
     Active Substance: MESALAMINE
     Indication: Product used for unknown indication
     Dosage: FREQUENCY TEXT: NOT PROVIDED
     Route: 065
  4. REMICADE [Concomitant]
     Active Substance: INFLIXIMAB
     Indication: Behcet^s syndrome
     Dosage: FREQUENCY TEXT: NOT PROVIDED
     Route: 042
     Dates: start: 2016
  5. IMURAN [Concomitant]
     Active Substance: AZATHIOPRINE
     Indication: Behcet^s syndrome
     Dosage: FREQUENCY TEXT: NOT PROVIDED
     Route: 048
     Dates: start: 2016
  6. INFLIXIMAB [Concomitant]
     Active Substance: INFLIXIMAB
     Indication: Product used for unknown indication
     Dosage: FREQUENCY TEXT: NOT PROVIDED?DOSE NOT PROVIDED
     Route: 065

REACTIONS (2)
  - Maternal exposure during pregnancy [Recovered/Resolved]
  - Normal newborn [Unknown]
